FAERS Safety Report 9136227 (Version 1)
Quarter: 2013Q1

REPORT INFORMATION
  Report Type: Spontaneous
  Country: US (occurrence: US)
  Receive Date: 20130304
  Receipt Date: 20130304
  Transmission Date: 20140127
  Serious: No
  Sender: FDA-Public Use
  Company Number: US-ABBOTT-12P-163-0978303-00

PATIENT
  Sex: Male

DRUGS (3)
  1. ANDROGEL [Suspect]
     Route: 061
     Dates: start: 2011
  2. LISINOPRIL [Suspect]
     Indication: HYPERTENSION
     Dates: end: 201208
  3. ATENOLOL [Concomitant]
     Indication: HYPERTENSION
     Route: 048
     Dates: start: 201208

REACTIONS (1)
  - Ageusia [Not Recovered/Not Resolved]
